FAERS Safety Report 7927481-0 (Version None)
Quarter: 2011Q4

REPORT INFORMATION
  Report Type: 
  Country: None (occurrence: None)
  Receive Date: 20111118
  Receipt Date: 20111107
  Transmission Date: 20120403
  Serious: Yes (Hospitalization, Other)
  Sender: FDA-Public Use
  Company Number: GR-PFIZER INC-2011279046

PATIENT
  Age: 50 Year
  Sex: Male

DRUGS (2)
  1. METRONIDAZOLE [Suspect]
  2. AMPICILLIN AND SULBACTAM [Suspect]
     Route: 042

REACTIONS (2)
  - DRUG INEFFECTIVE [None]
  - CONDITION AGGRAVATED [None]
